FAERS Safety Report 5109202-2 (Version None)
Quarter: 2006Q3

REPORT INFORMATION
  Report Type: 
  Country: None (occurrence: None)
  Receive Date: 20060731
  Receipt Date: 20060508
  Transmission Date: 20061208
  Serious: No
  Sender: FDA-Public Use
  Company Number: 2006PV013430

PATIENT
  Age: 61 Year
  Sex: Female
  Weight: 97.0698 kg

DRUGS (6)
  1. BYETTA [Suspect]
     Indication: DIABETES MELLITUS NON-INSULIN-DEPENDENT
     Dosage: 5 MCG;SC
     Route: 058
     Dates: start: 20060505
  2. ACTOS [Concomitant]
  3. GLYBURIDE [Concomitant]
  4. STARLIX [Concomitant]
  5. CALCIUM CITRATE WITH MAGNESIUM [Concomitant]
  6. LIBREX [Concomitant]

REACTIONS (5)
  - ABDOMINAL PAIN LOWER [None]
  - BACK PAIN [None]
  - CONDITION AGGRAVATED [None]
  - FAECES PALE [None]
  - PAIN IN EXTREMITY [None]
